FAERS Safety Report 8962567 (Version 1)
Quarter: 2012Q4

REPORT INFORMATION
  Report Type: Spontaneous
  Country: US (occurrence: None)
  Receive Date: 20121211
  Receipt Date: 20121211
  Transmission Date: 20130627
  Serious: Yes (Disabling, Other)
  Sender: FDA-Public Use
  Company Number: None

PATIENT
  Age: 54 Year
  Sex: Male
  Weight: 122.47 kg

DRUGS (1)
  1. BYDUREON [Suspect]
     Indication: DIABETES
     Dosage: starting mid October 2012

REACTIONS (5)
  - Flatulence [None]
  - Nausea [None]
  - Vomiting [None]
  - Malaise [None]
  - Impaired gastric emptying [None]
